FAERS Safety Report 10576529 (Version 1)
Quarter: 2014Q4

REPORT INFORMATION
  Report Type: Spontaneous
  Country: US (occurrence: US)
  Receive Date: 20141111
  Receipt Date: 20141111
  Transmission Date: 20150529
  Serious: Yes (Other)
  Sender: FDA-Public Use
  Company Number: US-TEVA-520416USA

PATIENT
  Age: 56 Year
  Sex: Female

DRUGS (7)
  1. WARFARIN [Concomitant]
     Active Substance: WARFARIN
  2. LOSARTAN [Concomitant]
     Active Substance: LOSARTAN
  3. COPAXONE [Suspect]
     Active Substance: GLATIRAMER ACETATE
     Indication: MULTIPLE SCLEROSIS
     Dosage: 20 MILLIGRAM DAILY; 20MG/ML
     Route: 058
     Dates: start: 20140916
  4. SERTRALINE [Concomitant]
     Active Substance: SERTRALINE HYDROCHLORIDE
  5. VESICARE [Concomitant]
     Active Substance: SOLIFENACIN SUCCINATE
  6. OXYCODONE [Concomitant]
     Active Substance: OXYCODONE
  7. CYCLOBENZAPRINE [Concomitant]
     Active Substance: CYCLOBENZAPRINE

REACTIONS (2)
  - Contusion [Unknown]
  - Fall [Unknown]

NARRATIVE: CASE EVENT DATE: 20141017
